FAERS Safety Report 5336738-1 (Version None)
Quarter: 2007Q2

REPORT INFORMATION
  Report Type: 
  Country: None (occurrence: None)
  Receive Date: 20070529
  Receipt Date: 20070517
  Transmission Date: 20071010
  Serious: Yes (Other)
  Sender: FDA-Public Use
  Company Number: PHFR2007GB01636

PATIENT
  Age: 36 Year
  Sex: Male

DRUGS (1)
  1. CLOZARIL [Suspect]
     Indication: SCHIZOPHRENIA
     Dosage: 450MG/DAY
     Route: 048
     Dates: start: 19980602

REACTIONS (3)
  - CONDITION AGGRAVATED [None]
  - GRAND MAL CONVULSION [None]
  - TIC [None]
